FAERS Safety Report 19884143 (Version 1)
Quarter: 2021Q3

REPORT INFORMATION
  Report Type: Spontaneous
  Country: US (occurrence: US)
  Receive Date: 20210926
  Receipt Date: 20210926
  Transmission Date: 20211014
  Serious: Yes (Life-Threatening)
  Sender: FDA-Public Use
  Company Number: None

PATIENT
  Age: 24 Year
  Sex: Female
  Weight: 96.75 kg

DRUGS (8)
  1. SERTRALINE HCI [Concomitant]
  2. BUPROPION. [Concomitant]
     Active Substance: BUPROPION
  3. MAGNESIUM [Concomitant]
     Active Substance: MAGNESIUM
  4. BAMLANIVIMAB AND ETESEVIMAB [Suspect]
     Active Substance: BAMLANIVIMAB\ETESEVIMAB
     Indication: COVID-19 PROPHYLAXIS
     Dosage: ?          OTHER FREQUENCY:ONE INFUSION;?
     Route: 042
     Dates: start: 20210925, end: 20210925
  5. MUCINEX [Concomitant]
     Active Substance: GUAIFENESIN
  6. PROAIR INHALER [Concomitant]
     Active Substance: ALBUTEROL SULFATE
  7. VITAMIN D [Concomitant]
     Active Substance: VITAMIN D NOS
  8. LEVOTHYROXIN [Concomitant]
     Active Substance: LEVOTHYROXINE

REACTIONS (7)
  - Infusion related reaction [None]
  - Pain [None]
  - Throat tightness [None]
  - Dyspnoea [None]
  - Hyperventilation [None]
  - Cough [None]
  - Vision blurred [None]

NARRATIVE: CASE EVENT DATE: 20210925
